FAERS Safety Report 5220654-X (Version None)
Quarter: 2007Q1

REPORT INFORMATION
  Report Type: 
  Country: None (occurrence: None)
  Receive Date: 20070126
  Receipt Date: 20070117
  Transmission Date: 20070707
  Serious: Yes (Hospitalization)
  Sender: FDA-Public Use
  Company Number: US-JNJFOC-20070105266

PATIENT
  Sex: Male
  Weight: 122.47 kg

DRUGS (20)
  1. FENTANYL TRANSDERMAL SYSTEM [Suspect]
     Indication: DIABETIC NEUROPATHY
     Route: 062
  2. POTASSIUM ACETATE [Concomitant]
     Indication: DRUG USE FOR UNKNOWN INDICATION
     Route: 048
  3. FLOMAX [Concomitant]
     Indication: BENIGN PROSTATIC HYPERPLASIA
     Route: 048
  4. GABAPENTIN [Concomitant]
     Indication: PAIN IN EXTREMITY
     Route: 048
  5. LIPITOR [Concomitant]
     Indication: BLOOD CHOLESTEROL INCREASED
     Route: 048
  6. ZETIN [Concomitant]
     Indication: BLOOD CHOLESTEROL INCREASED
     Route: 048
  7. VERAPAMIL [Concomitant]
     Indication: HEART RATE
     Route: 048
  8. PLAVIX [Concomitant]
     Indication: PERIPHERAL VASCULAR DISORDER
     Route: 048
  9. SOTALOL HYDROCHLORIDE [Concomitant]
     Indication: HEART RATE
     Route: 048
  10. LANOXIN [Concomitant]
     Indication: HEART RATE
     Route: 048
  11. FUROSEMIDE [Concomitant]
     Indication: FLUID RETENTION
     Route: 048
  12. GLYBURIDE [Concomitant]
     Indication: DIABETES MELLITUS
     Dosage: 5/500MG
     Route: 048
  13. PROPOXYPHENE HYDROCHLORIDE [Concomitant]
     Indication: PAIN IN EXTREMITY
     Dosage: AS NEEDED
     Route: 048
  14. NITROGLYCERIN [Concomitant]
     Indication: CHEST PAIN
     Route: 062
  15. PEPCID [Concomitant]
     Indication: DYSPEPSIA
     Route: 048
  16. ASPIRIN [Concomitant]
     Indication: NONSPECIFIC REACTION
     Route: 048
  17. NOVOLOG [Concomitant]
     Indication: DIABETES MELLITUS INSULIN-DEPENDENT
     Dosage: 25 UNITS, SOLUTION, 100 UNITS/ML TID IF SUGAR IS ABOVE 150
     Route: 058
  18. LANTUS [Concomitant]
     Indication: DIABETES MELLITUS INSULIN-DEPENDENT
     Dosage: 25 UNITS, SOLUTION, 100 UNITS/ML, 1 INJECTION AT NIGHT
     Route: 058
  19. NITROGLYCERIN [Concomitant]
     Dosage: 0.4MG EVERY 5 MINUTES AS NEEDED, NO MORE THAN 3
     Route: 048
  20. COUMADIN [Concomitant]
     Indication: ANTICOAGULANT THERAPY
     Dosage: 5MG TABLET, 1/2 TABLET PER DAY
     Route: 048

REACTIONS (10)
  - ABASIA [None]
  - BLOOD CHOLESTEROL DECREASED [None]
  - BRONCHITIS [None]
  - CONDITION AGGRAVATED [None]
  - DIABETES MELLITUS [None]
  - DIABETIC COMPLICATION [None]
  - DRUG INEFFECTIVE [None]
  - LOCALISED INFECTION [None]
  - PAIN [None]
  - THERAPEUTIC RESPONSE UNEXPECTED [None]
